FAERS Safety Report 6552329-9 (Version None)
Quarter: 2010Q1

REPORT INFORMATION
  Report Type: 
  Country: None (occurrence: None)
  Receive Date: 20100126
  Receipt Date: 20100114
  Transmission Date: 20100710
  Serious: Yes (Hospitalization)
  Sender: FDA-Public Use
  Company Number: DE-GENENTECH-293614

PATIENT

DRUGS (12)
  1. RITUXIMAB [Suspect]
     Indication: HODGKIN'S DISEASE
     Dosage: 375 MG/M2, UNK
     Route: 065
     Dates: start: 20091020
  2. ADRIAMYCIN PFS [Suspect]
     Indication: HODGKIN'S DISEASE
     Dosage: 35 MG/M2, UNK
     Route: 065
     Dates: start: 20091020
  3. PROCARBAZINE HYDROCHLORIDE [Suspect]
     Indication: HODGKIN'S DISEASE
     Dosage: 100 MG/M2, UNK
     Route: 065
     Dates: start: 20091020
  4. ETOPOSIDE [Suspect]
     Indication: HODGKIN'S DISEASE
     Dosage: 200 MG/M2, UNK
     Route: 065
     Dates: start: 20091020
  5. CYCLOPHOSPHAMIDE [Suspect]
     Indication: HODGKIN'S DISEASE
     Dosage: 1250 MG/M2, UNK
     Route: 065
     Dates: start: 20091020
  6. PREDNISONE [Suspect]
     Indication: HODGKIN'S DISEASE
     Dosage: 40 MG/M2, UNK
     Route: 065
     Dates: start: 20091020
  7. NEULASTA [Suspect]
     Indication: HODGKIN'S DISEASE
     Dosage: UNK
     Route: 065
     Dates: start: 20091023
  8. DIFLUCAN [Concomitant]
     Indication: DRUG USE FOR UNKNOWN INDICATION
  9. DICLOFENAC SODIUM [Concomitant]
     Indication: DRUG USE FOR UNKNOWN INDICATION
  10. LIDAPRIM [Concomitant]
     Indication: DRUG USE FOR UNKNOWN INDICATION
  11. PANTOPRAZOLE [Concomitant]
     Indication: DRUG USE FOR UNKNOWN INDICATION
  12. ESTROGENS CONJUGATED [Concomitant]
     Indication: DRUG USE FOR UNKNOWN INDICATION
     Dosage: UNK
     Dates: start: 20091203

REACTIONS (3)
  - DIARRHOEA [None]
  - ENTERITIS [None]
  - FEBRILE NEUTROPENIA [None]
